FAERS Safety Report 11618667 (Version 1)
Quarter: 2015Q4

REPORT INFORMATION
  Report Type: Spontaneous
  Country: US (occurrence: US)
  Receive Date: 20151012
  Receipt Date: 20151012
  Transmission Date: 20160304
  Serious: No
  Sender: FDA-Public Use
  Company Number: US-BRISTOL-MYERS SQUIBB COMPANY-BMS-2015-068195

PATIENT
  Sex: Female

DRUGS (1)
  1. SPRYCEL [Suspect]
     Active Substance: DASATINIB
     Indication: CHEMOTHERAPY
     Dosage: 100 MG, QD
     Route: 048
     Dates: start: 201407

REACTIONS (3)
  - Dysgeusia [Unknown]
  - Paraesthesia [Unknown]
  - Dizziness [Unknown]
